FAERS Safety Report 6924146-9 (Version None)
Quarter: 2010Q3

REPORT INFORMATION
  Report Type: 
  Country: None (occurrence: None)
  Receive Date: 20100812
  Receipt Date: 20100812
  Transmission Date: 20110219
  Serious: Yes (Life-Threatening, Hospitalization)
  Sender: FDA-Public Use
  Company Number: None

PATIENT
  Age: 39 Year
  Sex: Female
  Weight: 58.514 kg

DRUGS (1)
  1. DYSPORT [Suspect]
     Indication: MIGRAINE
     Dosage: 1 VIAL
     Dates: start: 20100629

REACTIONS (5)
  - INJECTION SITE PUSTULE [None]
  - INJECTION SITE RASH [None]
  - RASH GENERALISED [None]
  - THROAT TIGHTNESS [None]
  - TREMOR [None]
